FAERS Safety Report 14545658 (Version 2)
Quarter: 2018Q1

REPORT INFORMATION
  Report Type: Spontaneous
  Country: BG (occurrence: BG)
  Receive Date: 20180218
  Receipt Date: 20180222
  Transmission Date: 20180509
  Serious: Yes (Disabling)
  Sender: FDA-Public Use
  Company Number: BG-ABBVIE-18P-022-2260819-00

PATIENT
  Age: 18 Year
  Sex: Male

DRUGS (1)
  1. DEPAKINE CHRONO [Suspect]
     Active Substance: VALPROATE SODIUM
     Indication: HYDROCEPHALUS
     Route: 065

REACTIONS (5)
  - Medication residue present [Unknown]
  - Incorrect drug dosage form administered [Unknown]
  - Seizure [Unknown]
  - Vomiting [Unknown]
  - Treatment failure [Unknown]
